FAERS Safety Report 6900780-7 (Version None)
Quarter: 2010Q3

REPORT INFORMATION
  Report Type: 
  Country: None (occurrence: None)
  Receive Date: 20100803
  Receipt Date: 20100723
  Transmission Date: 20110219
  Serious: Yes (Disabling)
  Sender: FDA-Public Use
  Company Number: GB-SANOFI-AVENTIS-2010SA043513

PATIENT
  Age: 82 Year
  Sex: Female
  Weight: 87 kg

DRUGS (8)
  1. FUROSEMIDE [Suspect]
     Indication: PRODUCT USED FOR UNKNOWN INDICATION
     Route: 065
     Dates: start: 20100612
  2. ACETAMINOPHEN AND CODEINE PHOSPHATE [Concomitant]
     Indication: PRODUCT USED FOR UNKNOWN INDICATION
     Route: 065
     Dates: start: 20100316, end: 20100415
  3. ETODOLAC [Concomitant]
     Indication: PRODUCT USED FOR UNKNOWN INDICATION
     Route: 065
     Dates: start: 20100413, end: 20100511
  4. ETODOLAC [Concomitant]
     Route: 065
     Dates: start: 20100614, end: 20100712
  5. FUROSEMIDE [Concomitant]
     Dates: start: 20100614, end: 20100712
  6. METHOTREXATE [Concomitant]
     Indication: PRODUCT USED FOR UNKNOWN INDICATION
     Route: 065
     Dates: start: 20100406, end: 20100506
  7. METHOTREXATE [Concomitant]
     Route: 065
     Dates: start: 20100614, end: 20100714
  8. ACETAMINOPHEN [Concomitant]
     Indication: PRODUCT USED FOR UNKNOWN INDICATION
     Route: 065
     Dates: start: 20100614, end: 20100621

REACTIONS (1)
  - ARTHRALGIA [None]
